FAERS Safety Report 10886212 (Version 1)
Quarter: 2015Q1

REPORT INFORMATION
  Report Type: Other
  Country: US (occurrence: US)
  Receive Date: 20150304
  Receipt Date: 20150304
  Transmission Date: 20150721
  Serious: Yes (Other)
  Sender: FDA-Public Use
  Company Number: US-ENDO PHARMACEUTICALS INC-IBUP20150005

PATIENT
  Age: 62 Year
  Sex: Female

DRUGS (1)
  1. IBUPROFEN TABLETS 800MG [Suspect]
     Active Substance: IBUPROFEN
     Indication: RADICULAR PAIN
     Route: 065

REACTIONS (4)
  - Oedema peripheral [None]
  - Hypertensive emergency [Recovered/Resolved]
  - Hypokalaemia [None]
  - Proteinuria [None]
